FAERS Safety Report 7004973-2 (Version None)
Quarter: 2010Q3

REPORT INFORMATION
  Report Type: 
  Country: None (occurrence: None)
  Receive Date: 20100921
  Receipt Date: 20100908
  Transmission Date: 20110219
  Serious: Yes (Disabling)
  Sender: FDA-Public Use
  Company Number: US-BAYER-201032923NA

PATIENT
  Age: 86 Year
  Sex: Male

DRUGS (7)
  1. SOTALOL [Suspect]
     Indication: PRODUCT USED FOR UNKNOWN INDICATION
  2. CARVEDILOL [Suspect]
     Indication: ARRHYTHMIA
     Route: 048
     Dates: start: 20091001
  3. CARVEDILOL [Suspect]
     Route: 048
     Dates: start: 20091001
  4. CARVEDILOL [Suspect]
     Route: 048
  5. CARVEDILOL [Suspect]
     Indication: ARRHYTHMIA
  6. DIOVAN [Suspect]
     Indication: PRODUCT USED FOR UNKNOWN INDICATION
  7. LIPITOR [Suspect]
     Indication: PRODUCT USED FOR UNKNOWN INDICATION

REACTIONS (4)
  - ASTHENIA [None]
  - DRUG INTERACTION [None]
  - DYSPNOEA [None]
  - FATIGUE [None]
